FAERS Safety Report 6986212-1 (Version None)
Quarter: 2010Q3

REPORT INFORMATION
  Report Type: 
  Country: None (occurrence: None)
  Receive Date: 20100915
  Receipt Date: 20090601
  Transmission Date: 20110219
  Serious: No
  Sender: FDA-Public Use
  Company Number: US-WYE-H09601109

PATIENT
  Sex: Female
  Weight: 52.21 kg

DRUGS (3)
  1. PRISTIQ [Suspect]
     Indication: DEPRESSION
     Dosage: 1/4 OF A 50 MG TABLET
     Route: 048
     Dates: start: 20090330
  2. PRISTIQ [Suspect]
     Indication: ANXIETY
  3. KLONOPIN [Concomitant]

REACTIONS (3)
  - CONDITION AGGRAVATED [None]
  - DEPRESSION [None]
  - FATIGUE [None]
